FAERS Safety Report 5404828-0 (Version None)
Quarter: 2007Q3

REPORT INFORMATION
  Report Type: 
  Country: None (occurrence: None)
  Receive Date: 20070803
  Receipt Date: 20070730
  Transmission Date: 20080115
  Serious: Yes (Hospitalization)
  Sender: FDA-Public Use
  Company Number: PHRM2007FR01941

PATIENT
  Age: 59 Year
  Sex: Female

DRUGS (4)
  1. ZOMETA [Suspect]
     Indication: MULTIPLE MYELOMA
     Dosage: 4 MG, QMO
     Route: 042
     Dates: start: 20040916, end: 20050921
  2. TRILEPTAL [Concomitant]
     Dosage: 300 MG, BID
     Route: 048
     Dates: start: 20050316
  3. THALIDOMIDE [Concomitant]
     Dosage: 200 MG DAILY
     Route: 048
     Dates: start: 20030317
  4. SOPHIDONE [Concomitant]
     Dosage: 5 DF DAILY
     Route: 048
     Dates: start: 20040316, end: 20050621

REACTIONS (3)
  - OSTEONECROSIS [None]
  - SURGERY [None]
  - TOOTH EXTRACTION [None]
